FAERS Safety Report 8215469-4 (Version None)
Quarter: 2012Q1

REPORT INFORMATION
  Report Type: 
  Country: None (occurrence: None)
  Receive Date: 20120316
  Receipt Date: 20120308
  Transmission Date: 20120608
  Serious: Yes (Other)
  Sender: FDA-Public Use
  Company Number: US-ROCHE-1031904

PATIENT
  Sex: Male

DRUGS (3)
  1. PEGASYS [Suspect]
     Indication: HEPATITIS C
     Dates: start: 20120101
  2. RIBAVIRIN [Suspect]
     Indication: HEPATITIS C
     Dates: start: 20120101
  3. INCIVEK [Suspect]
     Indication: HEPATITIS C
     Route: 065
     Dates: start: 20120101

REACTIONS (7)
  - CHILLS [None]
  - TONGUE ULCERATION [None]
  - INSOMNIA [None]
  - EPISTAXIS [None]
  - PYREXIA [None]
  - PAIN [None]
  - DIARRHOEA [None]
